FAERS Safety Report 6956570-2 (Version None)
Quarter: 2010Q3

REPORT INFORMATION
  Report Type: 
  Country: None (occurrence: None)
  Receive Date: 20100830
  Receipt Date: 20100820
  Transmission Date: 20110219
  Serious: Yes (Other)
  Sender: FDA-Public Use
  Company Number: BR-PFIZER INC-2010105719

PATIENT
  Weight: 74 kg

DRUGS (8)
  1. CHAMPIX [Suspect]
     Indication: TOBACCO ABUSE
     Dosage: UNK
     Route: 048
     Dates: start: 20100801
  2. MYCOPHENOLATE MOFETIL [Concomitant]
     Indication: SYSTEMIC LUPUS ERYTHEMATOSUS
     Dosage: 1000 MG, 2X/DAY
     Dates: start: 20040101
  3. GABAPENTIN [Concomitant]
     Indication: DEPRESSION
     Dosage: 300 MG, 1 IN THE MORNING AND 2 AT NIGHT
     Dates: start: 20040101
  4. OMEPRAZOLE [Concomitant]
     Dosage: 40 MG, 2X/DAY
  5. FLUOXETINE [Concomitant]
     Indication: DEPRESSION
     Dosage: 20 MG, 1X/DAY
  6. SEROQUEL [Concomitant]
     Dosage: 100 MG, 1X/DAY, AT NIGHT
  7. RIVOTRIL [Concomitant]
     Indication: INSOMNIA
     Dosage: UNK
  8. ATORVASTATIN [Concomitant]
     Indication: BLOOD CHOLESTEROL INCREASED
     Dosage: 10 MG, UNK
     Dates: start: 20091001

REACTIONS (1)
  - MEMORY IMPAIRMENT [None]
